FAERS Safety Report 9024720 (Version 1)
Quarter: 2012Q4

REPORT INFORMATION
  Report Type: Spontaneous
  Country: US (occurrence: None)
  Receive Date: 20121231
  Receipt Date: 20121231
  Transmission Date: 20130627
  Serious: Yes (Hospitalization)
  Sender: FDA-Public Use
  Company Number: 1540244

PATIENT
  Age: 31 Year
  Sex: Male

DRUGS (2)
  1. SODIUM CHLORIDE [Suspect]
     Indication: DEVICE THERAPY
     Route: 042
  2. TACROLIMUS [Suspect]
     Indication: IMMUNOSUPPRESSION

REACTIONS (11)
  - Posterior reversible encephalopathy syndrome [None]
  - Nausea [None]
  - Vomiting [None]
  - Loss of consciousness [None]
  - Blindness [None]
  - Headache [None]
  - Medical device complication [None]
  - Procedural complication [None]
  - Blood pressure increased [None]
  - Hemianopia homonymous [None]
  - Grand mal convulsion [None]
